FAERS Safety Report 19985913 (Version 2)
Quarter: 2021Q4

REPORT INFORMATION
  Report Type: Spontaneous
  Country: CH (occurrence: None)
  Receive Date: 20211022
  Receipt Date: 20211118
  Transmission Date: 20220303
  Serious: Yes (Hospitalization)
  Sender: FDA-Public Use
  Company Number: 2021A778120

PATIENT
  Age: 64 Year

DRUGS (7)
  1. IMFINZI [Suspect]
     Active Substance: DURVALUMAB
     Indication: Non-small cell lung cancer stage III
     Route: 042
     Dates: start: 20201015, end: 20210727
  2. GLYCOPYRRONIUM\INDACATEROL [Concomitant]
     Active Substance: GLYCOPYRRONIUM\INDACATEROL
  3. TORSEMIDE [Concomitant]
     Active Substance: TORSEMIDE
  4. PANTOPRAZOLE SODIUM [Concomitant]
     Active Substance: PANTOPRAZOLE SODIUM
  5. CALCIUM\CHOLECALCIFEROL [Concomitant]
     Active Substance: CALCIUM\CHOLECALCIFEROL
  6. PREDNISONE [Concomitant]
     Active Substance: PREDNISONE
     Indication: Bacterial infection
     Dosage: 20 MG/J
     Dates: start: 20210809, end: 20210823
  7. AMOXICILLIN [Concomitant]
     Active Substance: AMOXICILLIN
     Indication: Bacterial infection
     Dosage: 20 MG/J, THEN TAPERING
     Dates: start: 20210809, end: 20210912

REACTIONS (1)
  - Parotitis [Recovered/Resolved]

NARRATIVE: CASE EVENT DATE: 20210806
